FAERS Safety Report 7913589-2 (Version None)
Quarter: 2011Q4

REPORT INFORMATION
  Report Type: 
  Country: None (occurrence: None)
  Receive Date: 20111115
  Receipt Date: 20111108
  Transmission Date: 20120403
  Serious: No
  Sender: FDA-Public Use
  Company Number: US-PFIZER INC-2011274040

PATIENT
  Sex: Male

DRUGS (3)
  1. METHOTREXATE [Concomitant]
     Indication: ARTHRITIS
     Dosage: 20 MG, WEEKLY
     Route: 065
  2. FOLIC ACID [Suspect]
     Dosage: 1 MG, DAILY
     Route: 065
  3. CENTRUM SILVER [Suspect]
     Dosage: 1 DF, 1X/DAY
     Route: 048

REACTIONS (1)
  - OVERDOSE [None]
